FAERS Safety Report 25329498 (Version 2)
Quarter: 2025Q2

REPORT INFORMATION
  Report Type: Spontaneous
  Country: US (occurrence: US)
  Receive Date: 20250519
  Receipt Date: 20250605
  Transmission Date: 20250716
  Serious: No
  Sender: AMGEN
  Company Number: US-AMGEN-USASP2025087959

PATIENT
  Sex: Female

DRUGS (3)
  1. EVENITY [Suspect]
     Active Substance: ROMOSOZUMAB-AQQG
     Indication: Osteoporosis postmenopausal
     Dosage: UNK UNK, QMO
     Route: 065
  2. EVENITY [Suspect]
     Active Substance: ROMOSOZUMAB-AQQG
     Dosage: UNK UNK, QMO
     Route: 065
  3. EVENITY [Suspect]
     Active Substance: ROMOSOZUMAB-AQQG
     Dosage: UNK UNK, QMO
     Route: 065

REACTIONS (3)
  - Device difficult to use [Unknown]
  - Accidental exposure to product [Unknown]
  - Injury associated with device [Recovered/Resolved]

NARRATIVE: CASE EVENT DATE: 20250502
